FAERS Safety Report 5143682-1 (Version None)
Quarter: 2006Q4

REPORT INFORMATION
  Report Type: 
  Country: None (occurrence: None)
  Receive Date: 20061103
  Receipt Date: 20061014
  Transmission Date: 20070319
  Serious: Yes (Hospitalization)
  Sender: FDA-Public Use
  Company Number: MX-ABBOTT-06P-107-0346908-00

PATIENT
  Age: 41 Year
  Sex: Male
  Weight: 63 kg

DRUGS (2)
  1. CONTROLIP [Suspect]
     Indication: HYPERTRIGLYCERIDAEMIA
     Dates: start: 20060824, end: 20060828
  2. ZIENT [Concomitant]
     Indication: HYPERTRIGLYCERIDAEMIA
     Dates: start: 20060824, end: 20060828

REACTIONS (9)
  - ANXIETY [None]
  - ASTHENIA [None]
  - CHEST PAIN [None]
  - HYPERHIDROSIS [None]
  - HYPOTENSION [None]
  - MYALGIA [None]
  - PALLOR [None]
  - TACHYCARDIA [None]
  - UNEVALUABLE EVENT [None]
